FAERS Safety Report 6816540-1 (Version None)
Quarter: 2010Q3

REPORT INFORMATION
  Report Type: 
  Country: None (occurrence: None)
  Receive Date: 20100706
  Receipt Date: 20100622
  Transmission Date: 20110219
  Serious: Yes (Other)
  Sender: FDA-Public Use
  Company Number: PHHY2010CA41723

PATIENT
  Sex: Female

DRUGS (1)
  1. ACLASTA [Suspect]
     Indication: OSTEOPOROSIS
     Dosage: UNK
     Dates: start: 20091103

REACTIONS (4)
  - ABNORMAL SENSATION IN EYE [None]
  - CUPULOLITHIASIS [None]
  - EYE PAIN [None]
  - VERTIGO [None]
